FAERS Safety Report 4843908-5 (Version None)
Quarter: 2005Q4

REPORT INFORMATION
  Report Type: 
  Country: None (occurrence: None)
  Receive Date: 20051202
  Receipt Date: 20050405
  Transmission Date: 20060501
  Serious: No
  Sender: FDA-Public Use
  Company Number: US-GLAXOSMITHKLINE-A0552802A

PATIENT
  Age: 8 Year
  Sex: Female

DRUGS (4)
  1. AUGMENTIN ES-600 [Suspect]
     Dosage: 14CC TWICE PER DAY
     Route: 048
  2. SINGULAIR [Concomitant]
  3. FLONASE [Concomitant]
  4. ZYRTEC [Concomitant]

REACTIONS (2)
  - TOOTH DISCOLOURATION [None]
  - WEIGHT INCREASED [None]
